FAERS Safety Report 13389662 (Version 2)
Quarter: 2018Q1

REPORT INFORMATION
  Report Type: Report from Study
  Country: IT (occurrence: IT)
  Receive Date: 20170331
  Receipt Date: 20180221
  Transmission Date: 20180508
  Serious: Yes (Hospitalization)
  Sender: FDA-Public Use
  Company Number: IT-ACCORD-049648

PATIENT
  Age: 43 Year
  Sex: Male

DRUGS (4)
  1. QUETIAPINE. [Suspect]
     Active Substance: QUETIAPINE
     Route: 048
  2. ESCITALOPRAM [Suspect]
     Active Substance: ESCITALOPRAM OXALATE
     Route: 048
  3. ETILTOX [Suspect]
     Active Substance: DISULFIRAM
     Dosage: STRENGTH: 200 MG
     Route: 048
  4. CARBOLITHIUM TEVA [Suspect]
     Active Substance: LITHIUM CARBONATE
     Dosage: STRENGTH: 300 MG, CAPSULE RIGID
     Route: 048

REACTIONS (3)
  - Drug abuse [Unknown]
  - Toxicity to various agents [Unknown]
  - Sopor [Unknown]

NARRATIVE: CASE EVENT DATE: 20161204
